FAERS Safety Report 12391540 (Version 1)
Quarter: 2016Q2

REPORT INFORMATION
  Report Type: Report from Study
  Country: US (occurrence: US)
  Receive Date: 20160521
  Receipt Date: 20160521
  Transmission Date: 20160815
  Serious: Yes (Other)
  Sender: FDA-Public Use
  Company Number: US-AMGEN-USASL2016063746

PATIENT
  Age: 43 Year
  Sex: Female

DRUGS (17)
  1. VITAMIN B12 [Concomitant]
     Active Substance: CYANOCOBALAMIN
  2. PRILOSEC [Concomitant]
     Active Substance: OMEPRAZOLE MAGNESIUM
  3. SOMA [Concomitant]
     Active Substance: CARISOPRODOL
  4. VITAMIN C [Concomitant]
     Active Substance: ASCORBIC ACID
  5. CALCIUM [Concomitant]
     Active Substance: CALCIUM
  6. BENADRYL [Concomitant]
     Active Substance: DIPHENHYDRAMINE HYDROCHLORIDE
  7. HYDROCODONE [Concomitant]
     Active Substance: HYDROCODONE
  8. LYRICA [Concomitant]
     Active Substance: PREGABALIN
  9. MELOXICAM. [Concomitant]
     Active Substance: MELOXICAM
  10. ENBREL [Suspect]
     Active Substance: ETANERCEPT
     Indication: PSORIATIC ARTHROPATHY
     Dosage: 50 MG, QWK
     Route: 058
     Dates: start: 201603
  11. CLONAZEPAM. [Concomitant]
     Active Substance: CLONAZEPAM
  12. MTV [Concomitant]
  13. VITAMIN D                          /00107901/ [Concomitant]
     Active Substance: ERGOCALCIFEROL
  14. AMITRIPTYLINE [Concomitant]
     Active Substance: AMITRIPTYLINE
  15. BIOTIN [Concomitant]
     Active Substance: BIOTIN
  16. COENZYME Q10 [Concomitant]
     Active Substance: UBIDECARENONE
  17. FLUOXETINE [Concomitant]
     Active Substance: FLUOXETINE HYDROCHLORIDE

REACTIONS (2)
  - Limb operation [Unknown]
  - Speech disorder [Unknown]

NARRATIVE: CASE EVENT DATE: 20160513
